FAERS Safety Report 8524285-5 (Version None)
Quarter: 2012Q3

REPORT INFORMATION
  Report Type: 
  Country: None (occurrence: None)
  Receive Date: 20120720
  Receipt Date: 20120702
  Transmission Date: 20120928
  Serious: No
  Sender: FDA-Public Use
  Company Number: US-ASTRAZENECA-2006UW07987

PATIENT
  Age: 64 Year
  Sex: Female
  Weight: 76.2 kg

DRUGS (29)
  1. METFORMIN HYDROCHLORIDE [Concomitant]
     Dates: start: 20120626
  2. RISPERDAL [Concomitant]
     Dates: start: 20041212
  3. PERCOCET [Concomitant]
     Dosage: 7.5 - 325 MG TABLET AS NEEDED EVERY SIX HOURS PRN
     Dates: start: 20120626
  4. SEROQUEL [Suspect]
     Indication: DEPRESSION
     Dosage: 200-750 MG
     Route: 048
     Dates: start: 20041212
  5. SEROQUEL [Suspect]
     Route: 048
     Dates: start: 20120626
  6. METFORMIN HYDROCHLORIDE [Concomitant]
     Indication: HYPERGLYCAEMIA
     Dates: start: 20061201
  7. ZYPREXA [Concomitant]
     Indication: ANXIETY
     Dosage: 2.5-1.5 MG DAILY
     Route: 048
     Dates: start: 20040726
  8. SEROQUEL [Suspect]
     Route: 048
  9. SEROQUEL [Suspect]
     Route: 048
     Dates: start: 20120626
  10. PROZAC [Concomitant]
     Indication: DEPRESSION
     Dates: start: 19950101
  11. PROZAC [Concomitant]
     Dosage: 40-60 MG DAILY
     Route: 048
     Dates: start: 20000930
  12. AMBIEN [Concomitant]
     Indication: SLEEP DISORDER
     Dosage: 10-20 MG AT NIGHT
     Route: 048
     Dates: start: 20040203
  13. XANAX [Concomitant]
     Indication: ANXIETY
     Dosage: 0.25-5 MG
     Dates: start: 20000925
  14. PROZAC [Concomitant]
     Dosage: 40 MG CAPSULE TWO TIMES A DAY
     Dates: start: 20120626
  15. METFORMIN HYDROCHLORIDE [Concomitant]
     Dates: start: 20120626
  16. VANTIN [Concomitant]
     Dates: start: 20120626
  17. MEDROL [Concomitant]
     Dates: start: 20120626
  18. SEPTRA [Suspect]
     Route: 065
  19. METFORMIN HYDROCHLORIDE [Concomitant]
     Indication: DIABETES MELLITUS
     Dates: start: 20061201
  20. TAMOXIFEN CITRATE [Concomitant]
     Indication: BREAST CANCER
     Dosage: 10-40 MG DAILY
     Route: 048
     Dates: start: 20010101
  21. ZYPREXA [Concomitant]
     Indication: SLEEP DISORDER
     Dosage: 2.5-1.5 MG DAILY
     Route: 048
     Dates: start: 20040726
  22. GEMFIBROZIL [Concomitant]
     Indication: DYSLIPIDAEMIA
     Dates: start: 20041219
  23. LORTAB [Concomitant]
     Indication: PAIN
     Dosage: 7.5 5-500 TABLET ONE TO TWO TABLETS AS NEEDED EVERY SIX HOURS
     Dates: start: 20120626
  24. SEROQUEL [Suspect]
     Route: 048
  25. RESTORIL [Concomitant]
     Indication: SLEEP DISORDER
     Route: 048
     Dates: start: 20010531
  26. LISINOPRIL [Concomitant]
     Route: 048
     Dates: start: 20041219
  27. VITAMIN D [Concomitant]
     Dosage: 50000 UNITS CAPSULE TWICE WEEKLY
     Dates: start: 20120626
  28. SEROQUEL [Suspect]
     Indication: INSOMNIA
     Dosage: 200-750 MG
     Route: 048
     Dates: start: 20041212
  29. BUPIVACAINE HCL [Suspect]
     Route: 065

REACTIONS (11)
  - PRODUCTIVE COUGH [None]
  - HEPATITIS C [None]
  - DIABETES MELLITUS INADEQUATE CONTROL [None]
  - DIZZINESS [None]
  - PYREXIA [None]
  - TYPE 2 DIABETES MELLITUS [None]
  - CHILLS [None]
  - BRONCHITIS [None]
  - DIABETES MELLITUS [None]
  - HYPERHIDROSIS [None]
  - COUGH [None]
